FAERS Safety Report 9854556 (Version 2)
Quarter: 2014Q1

REPORT INFORMATION
  Report Type: Report from Study
  Country: DE (occurrence: DE)
  Receive Date: 20140130
  Receipt Date: 20140131
  Transmission Date: 20141002
  Serious: Yes (Hospitalization)
  Sender: FDA-Public Use
  Company Number: DE-ROCHE-1340813

PATIENT
  Age: 55 Year
  Sex: Male

DRUGS (11)
  1. RITUXIMAB [Suspect]
     Indication: RHEUMATOID ARTHRITIS
     Route: 065
     Dates: start: 20090220
  2. RITUXIMAB [Suspect]
     Route: 065
     Dates: start: 20090702
  3. RITUXIMAB [Suspect]
     Route: 065
     Dates: start: 20100303
  4. RITUXIMAB [Suspect]
     Route: 065
     Dates: start: 20100906
  5. RITUXIMAB [Suspect]
     Route: 065
     Dates: start: 20110307
  6. RITUXIMAB [Suspect]
     Route: 065
     Dates: start: 20110902
  7. RITUXIMAB [Suspect]
     Route: 065
     Dates: start: 20120316
  8. RITUXIMAB [Suspect]
     Route: 065
     Dates: start: 20121113
  9. RITUXIMAB [Suspect]
     Route: 065
     Dates: start: 20130304
  10. RITUXIMAB [Suspect]
     Route: 065
     Dates: start: 20130724
  11. RITUXIMAB [Suspect]
     Route: 065
     Dates: start: 20090807

REACTIONS (1)
  - Ankle arthroplasty [Unknown]
